FAERS Safety Report 16615359 (Version 1)
Quarter: 2019Q3

REPORT INFORMATION
  Report Type: Spontaneous
  Country: US (occurrence: US)
  Receive Date: 20190723
  Receipt Date: 20190723
  Transmission Date: 20191004
  Serious: Yes (Other)
  Sender: FDA-Public Use
  Company Number: US-JNJFOC-20190723909

PATIENT
  Sex: Male

DRUGS (1)
  1. SYMTUZA [Suspect]
     Active Substance: COBICISTAT\DARUNAVIR\EMTRICITABINE\TENOFOVIR ALAFENAMIDE
     Indication: HIV TEST POSITIVE
     Dosage: 800MG/150MG/200MG/10MG
     Route: 048

REACTIONS (2)
  - Malabsorption [Unknown]
  - Blood HIV RNA [Unknown]

NARRATIVE: CASE EVENT DATE: 201903
